FAERS Safety Report 18506765 (Version 1)
Quarter: 2020Q4

REPORT INFORMATION
  Report Type: Spontaneous
  Country: US (occurrence: US)
  Receive Date: 20201114
  Receipt Date: 20201114
  Transmission Date: 20210114
  Serious: Yes (Other)
  Sender: FDA-Public Use
  Company Number: None

PATIENT
  Age: 39 Year
  Sex: Female
  Weight: 65.25 kg

DRUGS (14)
  1. VYSINE ALLERGY [Concomitant]
  2. COENZYME Q10 [Concomitant]
     Active Substance: DIETARY SUPPLEMENT\UBIDECARENONE
  3. SINGULAIR [Suspect]
     Active Substance: MONTELUKAST SODIUM
     Indication: MULTIPLE ALLERGIES
     Route: 048
     Dates: start: 20170512, end: 20200815
  4. BICARBONATE [Concomitant]
     Active Substance: SODIUM BICARBONATE
  5. MUCINEX [Concomitant]
     Active Substance: GUAIFENESIN
  6. TUMERIC [Concomitant]
     Active Substance: HERBALS\TURMERIC
  7. DRAMAMINE [Concomitant]
     Active Substance: DIMENHYDRINATE
  8. CALCIUM [Concomitant]
     Active Substance: CALCIUM
  9. VYVANSE [Concomitant]
     Active Substance: LISDEXAMFETAMINE DIMESYLATE
  10. MAGNESIUM [Concomitant]
     Active Substance: MAGNESIUM
  11. VITAMIN B COMPLEX [Concomitant]
     Active Substance: CYANOCOBALAMIN\DEXPANTHENOL\NIACINAMIDE\PYRIDOXINE HYDROCHLORIDE\RIBOFLAVIN 5^-PHOSPHATE SODIUM\THIAMINE HYDROCHLORIDE\VITAMIN B COMPLEX
  12. XYZAL [Concomitant]
     Active Substance: LEVOCETIRIZINE DIHYDROCHLORIDE
  13. MULTI VITAMIN [Concomitant]
     Active Substance: VITAMINS
  14. FLONASE [Concomitant]
     Active Substance: FLUTICASONE PROPIONATE

REACTIONS (9)
  - Depression [None]
  - Panic attack [None]
  - Anxiety [None]
  - Dizziness [None]
  - Tremor [None]
  - Syncope [None]
  - Swelling face [None]
  - Sleep disorder [None]
  - Hot flush [None]

NARRATIVE: CASE EVENT DATE: 20170512
